FAERS Safety Report 9633076 (Version 3)
Quarter: 2013Q4

REPORT INFORMATION
  Report Type: Spontaneous
  Country: GB (occurrence: GB)
  Receive Date: 20131018
  Receipt Date: 20131031
  Transmission Date: 20140711
  Serious: Yes (Life-Threatening, Hospitalization, Other)
  Sender: FDA-Public Use
  Company Number: GB-B.I. PHARMACEUTICALS,INC./RIDGEFIELD-2013-UK-00946UK

PATIENT
  Age: 76 Year
  Sex: Male

DRUGS (9)
  1. PRADAXA [Suspect]
     Indication: PROPHYLAXIS
     Dosage: 300 MG
     Route: 048
     Dates: start: 201209, end: 20130407
  2. ATORVASTATIN [Concomitant]
  3. BISOPROLOL [Concomitant]
  4. CALCEOS [Concomitant]
  5. CARBAMAZEPINE [Concomitant]
  6. OMEPRAZOLE [Concomitant]
  7. PREDNISOLONE [Concomitant]
  8. TAMSULOSIN [Concomitant]
  9. TRAMADOL [Concomitant]

REACTIONS (2)
  - Cerebral infarction [Not Recovered/Not Resolved]
  - Dysarthria [Not Recovered/Not Resolved]
